FAERS Safety Report 6343591-6 (Version None)
Quarter: 2009Q3

REPORT INFORMATION
  Report Type: 
  Country: None (occurrence: None)
  Receive Date: 20090904
  Receipt Date: 20090904
  Transmission Date: 20100115
  Serious: Yes (Death)
  Sender: FDA-Public Use
  Company Number: None

PATIENT
  Sex: Male
  Weight: 90.7194 kg

DRUGS (1)
  1. PHENTERMINE [Suspect]
     Indication: WEIGHT INCREASED
     Dosage: 1 TAB 1 X DAY MOUTH STARTED ON MARCH 24, 2009
     Route: 048
     Dates: start: 20090324

REACTIONS (6)
  - BRAIN OEDEMA [None]
  - FALL [None]
  - HEAD INJURY [None]
  - LOSS OF CONSCIOUSNESS [None]
  - PULMONARY EMBOLISM [None]
  - THROMBOSIS [None]
